FAERS Safety Report 18390975 (Version 2)
Quarter: 2022Q2

REPORT INFORMATION
  Report Type: Spontaneous
  Country: FR (occurrence: FR)
  Receive Date: 20201016
  Receipt Date: 20220622
  Transmission Date: 20220721
  Serious: Yes (Hospitalization)
  Sender: FDA-Public Use
  Company Number: FR-AFSSAPS-PC20200564

PATIENT
  Age: 37 Year
  Sex: Male
  Weight: 65 kg

DRUGS (7)
  1. QUETIAPINE [Suspect]
     Active Substance: QUETIAPINE
     Indication: Wrong patient received product
     Dosage: 800 MILLIGRAM, TOTAL
     Route: 048
     Dates: start: 20200828
  2. QUETIAPINE [Suspect]
     Active Substance: QUETIAPINE
     Dosage: UNK (3 QUETIAPINE TABLETS)
     Route: 048
     Dates: start: 20220303
  3. RISPERIDONE [Suspect]
     Active Substance: RISPERIDONE
     Indication: Wrong patient received product
     Dosage: 4 MILLIGRAM
     Route: 048
     Dates: start: 20200828
  4. LOXAPINE [Suspect]
     Active Substance: LOXAPINE
     Indication: Wrong patient received product
     Dosage: 50 MILLIGRAM, ONCE A DAY
     Route: 048
     Dates: start: 20200828
  5. LOXAPINE [Suspect]
     Active Substance: LOXAPINE
     Dosage: 5 DROP (5 GOUTTES DE LOXAPAC)
     Route: 048
     Dates: start: 20220303
  6. OXAZEPAM [Suspect]
     Active Substance: OXAZEPAM
     Indication: Wrong patient received product
     Dosage: 50 MILLIGRAM, TOTAL
     Route: 048
     Dates: start: 20200828
  7. OXAZEPAM [Suspect]
     Active Substance: OXAZEPAM
     Dosage: UNK (2 SERENADE PILLS)
     Route: 048
     Dates: start: 20220303

REACTIONS (5)
  - Psychomotor skills impaired [Recovered/Resolved]
  - Sinus tachycardia [Recovered/Resolved]
  - Wrong patient received product [Recovered/Resolved]
  - Product administration error [Recovered/Resolved]
  - Somnolence [Recovered/Resolved]

NARRATIVE: CASE EVENT DATE: 20200828
